FAERS Safety Report 4317704-1 (Version None)
Quarter: 2004Q1

REPORT INFORMATION
  Report Type: 
  Country: None (occurrence: None)
  Receive Date: 20040315
  Receipt Date: 20040303
  Transmission Date: 20041129
  Serious: Yes (Hospitalization)
  Sender: FDA-Public Use
  Company Number: US-ROCHE-361552

PATIENT
  Age: 67 Year
  Sex: Female

DRUGS (2)
  1. CAPECITABINE [Suspect]
     Dosage: TWO WEEKS TREATMENT AND ONE WEEK REST.
     Route: 048
     Dates: start: 20031202, end: 20040222
  2. TAXOL [Suspect]
     Route: 042
     Dates: start: 20031202, end: 20040216

REACTIONS (1)
  - DEEP VEIN THROMBOSIS [None]
